FAERS Safety Report 15386897 (Version 6)
Quarter: 2021Q4

REPORT INFORMATION
  Report Type: Spontaneous
  Country: US (occurrence: US)
  Receive Date: 20180914
  Receipt Date: 20211224
  Transmission Date: 20220303
  Serious: Yes (Disabling, Other)
  Sender: FDA-Public Use
  Company Number: US-PFIZER INC-2018368579

PATIENT
  Age: 71 Year
  Sex: Female

DRUGS (2)
  1. METHOTREXATE SODIUM [Suspect]
     Active Substance: METHOTREXATE SODIUM
     Indication: Rheumatoid arthritis
     Dosage: UNK, WEEKLY
  2. XELJANZ XR [Concomitant]
     Active Substance: TOFACITINIB CITRATE
     Dosage: UNK, DAILY

REACTIONS (7)
  - Rheumatoid arthritis [Unknown]
  - Drug ineffective [Unknown]
  - Pain in extremity [Unknown]
  - Peripheral swelling [Unknown]
  - Arthropathy [Unknown]
  - Loss of personal independence in daily activities [Unknown]
  - Illness [Unknown]
